FAERS Safety Report 7497960-1 (Version None)
Quarter: 2011Q2

REPORT INFORMATION
  Report Type: 
  Country: None (occurrence: None)
  Receive Date: 20110524
  Receipt Date: 20110516
  Transmission Date: 20111010
  Serious: No
  Sender: FDA-Public Use
  Company Number: US-BIOGENIDEC-2010BI021612

PATIENT
  Age: 44 Year
  Sex: Female

DRUGS (1)
  1. TYSABRI [Suspect]
     Indication: MULTIPLE SCLEROSIS
     Route: 042
     Dates: start: 20100621

REACTIONS (10)
  - INFUSION SITE PAIN [None]
  - PAIN IN EXTREMITY [None]
  - MUSCULAR WEAKNESS [None]
  - FATIGUE [None]
  - FEELING COLD [None]
  - DEPRESSION [None]
  - SENSATION OF HEAVINESS [None]
  - PARAESTHESIA [None]
  - BURNING SENSATION [None]
  - DRUG INEFFECTIVE [None]
